FAERS Safety Report 5603264-1 (Version None)
Quarter: 2008Q1

REPORT INFORMATION
  Report Type: 
  Country: None (occurrence: None)
  Receive Date: 20080125
  Receipt Date: 20080115
  Transmission Date: 20080703
  Serious: Yes (Other)
  Sender: FDA-Public Use
  Company Number: CA-PFIZER INC-2008005923

PATIENT
  Age: 32 Year
  Sex: Female

DRUGS (6)
  1. LYRICA [Suspect]
     Route: 048
     Dates: start: 20080107, end: 20080101
  2. MELOXICAM [Concomitant]
  3. ULTRACET [Concomitant]
  4. NEXIUM [Concomitant]
  5. PERCOCET [Concomitant]
  6. LORAZEPAM [Concomitant]

REACTIONS (1)
  - HYPERVIGILANCE [None]
